FAERS Safety Report 10077083 (Version 1)
Quarter: 2014Q2

REPORT INFORMATION
  Report Type: Spontaneous
  Country: DE (occurrence: DE)
  Receive Date: 20140414
  Receipt Date: 20140414
  Transmission Date: 20141212
  Serious: Yes (Other)
  Sender: FDA-Public Use
  Company Number: PHHY2014DE044003

PATIENT
  Sex: Male

DRUGS (3)
  1. LEPONEX / CLOZARIL (CLOZAPINE) [Suspect]
     Dosage: 800 MG, DAILY (100 MG AND 150 MG)
  2. SOLIAN [Concomitant]
     Dosage: 1 DF, BID
  3. CLEXANE [Concomitant]
     Dosage: 0.4 ML, UNK

REACTIONS (5)
  - Convulsion [Unknown]
  - Psychotic disorder [Unknown]
  - Aggression [Unknown]
  - Electroencephalogram abnormal [Unknown]
  - Grip strength decreased [Unknown]
